FAERS Safety Report 13120264 (Version 1)
Quarter: 2017Q1

REPORT INFORMATION
  Report Type: Spontaneous
  Country: US (occurrence: US)
  Receive Date: 20170117
  Receipt Date: 20170117
  Transmission Date: 20170428
  Serious: No
  Sender: FDA-Public Use
  Company Number: US-TEVA-717682USA

PATIENT
  Sex: Male

DRUGS (1)
  1. PROAIR RESPICLICK [Suspect]
     Active Substance: ALBUTEROL SULFATE
     Indication: SINUS DISORDER

REACTIONS (3)
  - Dyspnoea [Recovered/Resolved]
  - Heart rate increased [Not Recovered/Not Resolved]
  - Chest pain [Recovered/Resolved]
